FAERS Safety Report 10780436 (Version 1)
Quarter: 2015Q1

REPORT INFORMATION
  Report Type: Spontaneous
  Country: US (occurrence: None)
  Receive Date: 20150209
  Receipt Date: 20150209
  Transmission Date: 20150721
  Serious: No
  Sender: FDA-Public Use
  Company Number: None

PATIENT
  Age: 56 Year
  Sex: Female

DRUGS (1)
  1. ADVAIR DISKUS [Suspect]
     Active Substance: FLUTICASONE PROPIONATE\SALMETEROL XINAFOATE
     Indication: ASTHMA
     Dosage: 1 PUFF BID INHALED
     Route: 055
     Dates: start: 201412, end: 201502

REACTIONS (3)
  - Dysphonia [None]
  - Pain [None]
  - Flushing [None]

NARRATIVE: CASE EVENT DATE: 20150101
